FAERS Safety Report 10381379 (Version 1)
Quarter: 2014Q3

REPORT INFORMATION
  Report Type: Spontaneous
  Country: IT (occurrence: IT)
  Receive Date: 20140813
  Receipt Date: 20140813
  Transmission Date: 20150326
  Serious: Yes (Hospitalization)
  Sender: FDA-Public Use
  Company Number: IT-BAYER-2014-117642

PATIENT
  Age: 85 Year
  Sex: Female
  Weight: 74 kg

DRUGS (6)
  1. CLEXANE [Concomitant]
     Active Substance: ENOXAPARIN SODIUM
     Dosage: UNK
  2. LASIX [Concomitant]
     Active Substance: FUROSEMIDE
     Dosage: DAILY DOSE 25 MG
     Route: 048
  3. CARDICOR [Concomitant]
     Active Substance: BISOPROLOL
     Dosage: DAILY DOSE 1.25 MG
     Route: 048
  4. CIPROXIN [Suspect]
     Active Substance: CIPROFLOXACIN
     Indication: URINARY TRACT INFECTION
     Dosage: DAILY DOSE 400 MG
     Route: 041
     Dates: start: 20140712, end: 20140716
  5. MEDROL [Concomitant]
     Active Substance: METHYLPREDNISOLONE
     Dosage: DAILY DOSE 4 MG
     Route: 048
  6. KANRENOL [Concomitant]
     Active Substance: CANRENOATE POTASSIUM
     Dosage: DAILY DOSE 100 MG

REACTIONS (3)
  - Petit mal epilepsy [Recovered/Resolved with Sequelae]
  - Myoclonic epilepsy [Recovered/Resolved with Sequelae]
  - Oculogyric crisis [Recovered/Resolved with Sequelae]

NARRATIVE: CASE EVENT DATE: 20140716
